FAERS Safety Report 19146641 (Version 4)
Quarter: 2021Q3

REPORT INFORMATION
  Report Type: Spontaneous
  Country: US (occurrence: US)
  Receive Date: 20210416
  Receipt Date: 20210715
  Transmission Date: 20211014
  Serious: Yes (Hospitalization)
  Sender: FDA-Public Use
  Company Number: US-CATALYST PHARMACEUTICALS, INC-2021CAT00146

PATIENT
  Age: 23 Year
  Sex: Female
  Weight: 72.11 kg

DRUGS (4)
  1. FIRDAPSE [Suspect]
     Active Substance: AMIFAMPRIDINE PHOSPHATE
     Dosage: 20 MG, 3X/DAY (EVERY 8 HOURS)
     Route: 048
     Dates: start: 20210408
  2. UNSPECIFIED ANTIDEPRESSANT MEDICATION [Concomitant]
  3. FIRDAPSE [Suspect]
     Active Substance: AMIFAMPRIDINE PHOSPHATE
     Indication: MYASTHENIC SYNDROME
     Dosage: 10 MG, EVERY 8 HOURS
     Route: 048
     Dates: start: 20210326, end: 20210407
  4. UNSPECIFIED STOMACH PILL [Concomitant]

REACTIONS (7)
  - Nervous system disorder [Recovering/Resolving]
  - Dyspnoea [Not Recovered/Not Resolved]
  - Condition aggravated [Not Recovered/Not Resolved]
  - Myasthenic syndrome [Recovered/Resolved]
  - Pain [Unknown]
  - Asthenia [Not Recovered/Not Resolved]
  - Anaemia [Not Recovered/Not Resolved]

NARRATIVE: CASE EVENT DATE: 202104
